FAERS Safety Report 25761976 (Version 1)
Quarter: 2025Q3

REPORT INFORMATION
  Report Type: Spontaneous
  Country: JP (occurrence: JP)
  Receive Date: 20250904
  Receipt Date: 20250904
  Transmission Date: 20251020
  Serious: Yes (Other)
  Sender: BRECKENRIDGE PHARMACEUTICAL, INC.
  Company Number: JP-Breckenridge Pharmaceutical, Inc.-2183834

PATIENT
  Age: 82 Year
  Sex: Female

DRUGS (2)
  1. RIVASTIGMINE TRANSDERMAL SYSTEM [Suspect]
     Active Substance: RIVASTIGMINE
     Indication: Dementia Alzheimer^s type
     Dates: start: 20250715
  2. GALANTAMINE [Concomitant]
     Active Substance: GALANTAMINE

REACTIONS (1)
  - Keloid scar [Recovering/Resolving]
